FAERS Safety Report 11278773 (Version 1)
Quarter: 2015Q3

REPORT INFORMATION
  Report Type: Spontaneous
  Country: IT (occurrence: IT)
  Receive Date: 20150717
  Receipt Date: 20150717
  Transmission Date: 20151125
  Serious: Yes (Life-Threatening, Other)
  Sender: FDA-Public Use
  Company Number: PHHY2015IT085215

PATIENT
  Age: 37 Year
  Sex: Female

DRUGS (1)
  1. AFINITOR [Suspect]
     Active Substance: EVEROLIMUS
     Indication: BREAST CANCER STAGE IV
     Dosage: 5 MG, QD
     Route: 048
     Dates: start: 20150306, end: 20150612

REACTIONS (8)
  - Thrombocytopenia [Recovering/Resolving]
  - Hydronephrosis [Recovering/Resolving]
  - Bacterial pyelonephritis [Recovering/Resolving]
  - Ureteric dilatation [Unknown]
  - Anaemia [Unknown]
  - Pleural effusion [Unknown]
  - Pyelocaliectasis [Not Recovered/Not Resolved]
  - Kidney enlargement [Unknown]

NARRATIVE: CASE EVENT DATE: 20150612
